FAERS Safety Report 5275840-X (Version None)
Quarter: 2007Q1

REPORT INFORMATION
  Report Type: 
  Country: None (occurrence: None)
  Receive Date: 20070321
  Receipt Date: 20061108
  Transmission Date: 20070707
  Serious: Yes (Hospitalization)
  Sender: FDA-Public Use
  Company Number: 233801K06USA

PATIENT
  Age: 37 Year
  Sex: Female

DRUGS (5)
  1. REBIF [Suspect]
     Indication: MULTIPLE SCLEROSIS
     Dosage: 44 MCG, 3 IN 1 WEEKS, SUBCUTANEOUS
     Route: 058
     Dates: start: 20050613
  2. WELLBUTRIN [Suspect]
     Dosage: 1 IN 1 DAYS, ORAL
     Route: 048
     Dates: start: 20050501, end: 20060501
  3. BUSPAR [Suspect]
     Dosage: 2 IN 1 DAYS, ORAL
     Route: 048
     Dates: start: 20050801, end: 20060501
  4. XANAX [Suspect]
     Dosage: 2 IN 1 DAYS, ORAL
     Route: 048
     Dates: start: 20050801, end: 20060501
  5. AMBIEN [Suspect]
     Dosage: 1 IN 1 DAYS, ORAL
     Route: 048
     Dates: start: 20050801, end: 20060501

REACTIONS (1)
  - GRAND MAL CONVULSION [None]
